FAERS Safety Report 12161820 (Version 1)
Quarter: 2016Q1

REPORT INFORMATION
  Report Type: Spontaneous
  Country: US (occurrence: US)
  Receive Date: 20160309
  Receipt Date: 20160309
  Transmission Date: 20160526
  Serious: Yes (Other)
  Sender: FDA-Public Use
  Company Number: US-BEH-2016059528

PATIENT
  Sex: Female
  Weight: 123 kg

DRUGS (25)
  1. LANTUS SOLOSTAR [Concomitant]
     Active Substance: INSULIN GLARGINE
  2. FLUTICASONE PROPIONATE. [Concomitant]
     Active Substance: FLUTICASONE PROPIONATE
  3. HIZENTRA [Suspect]
     Active Substance: HUMAN IMMUNOGLOBULIN G
     Indication: IMMUNODEFICIENCY COMMON VARIABLE
     Route: 058
  4. LORAZEPAM. [Concomitant]
     Active Substance: LORAZEPAM
  5. OXYBUTYNIN CHLORIDE. [Concomitant]
     Active Substance: OXYBUTYNIN CHLORIDE
  6. CITALOPRAM [Concomitant]
     Active Substance: CITALOPRAM HYDROBROMIDE
  7. ACETAMINOPHEN. [Concomitant]
     Active Substance: ACETAMINOPHEN
  8. SYMBICORT [Concomitant]
     Active Substance: BUDESONIDE\FORMOTEROL FUMARATE DIHYDRATE
  9. NEXIUM [Concomitant]
     Active Substance: ESOMEPRAZOLE MAGNESIUM
  10. MONTELUKAST [Concomitant]
     Active Substance: MONTELUKAST SODIUM
  11. CALCITRATE+VITAMIN D [Concomitant]
  12. EPIPEN [Concomitant]
     Active Substance: EPINEPHRINE
  13. HYDROCODONE BITARTRATE AND ACETAMINOPHEN [Concomitant]
     Active Substance: ACETAMINOPHEN\HYDROCODONE BITARTRATE
  14. FUROSEMIDE. [Concomitant]
     Active Substance: FUROSEMIDE
  15. SALINE MIST [Concomitant]
     Active Substance: SODIUM CHLORIDE
  16. DIPHENHYDRAMINE. [Concomitant]
     Active Substance: DIPHENHYDRAMINE
  17. CALCITRIOL. [Concomitant]
     Active Substance: CALCITRIOL
  18. FLUCONAZOLE. [Concomitant]
     Active Substance: FLUCONAZOLE
  19. ALLOPURINOL. [Concomitant]
     Active Substance: ALLOPURINOL
  20. PROAIR HFA [Concomitant]
     Active Substance: ALBUTEROL SULFATE
  21. RISPERIDONE. [Concomitant]
     Active Substance: RISPERIDONE
  22. LIPITOR [Concomitant]
     Active Substance: ATORVASTATIN CALCIUM
  23. VITAMIN B COMPLEX [Concomitant]
     Active Substance: CYANOCOBALAMIN\DEXPANTHENOL\NIACINAMIDE\PYRIDOXINE HYDROCHLORIDE\RIBOFLAVIN 5^-PHOSPHATE SODIUM\THIAMINE HYDROCHLORIDE\VITAMIN B COMPLEX
  24. NOVOLOG [Concomitant]
     Active Substance: INSULIN ASPART
  25. IPRATROPIUM BROMIDE. [Concomitant]
     Active Substance: IPRATROPIUM BROMIDE

REACTIONS (2)
  - Sinusitis [Unknown]
  - Lung infection [Unknown]
